FAERS Safety Report 11362316 (Version 1)
Quarter: 2015Q3

REPORT INFORMATION
  Report Type: Spontaneous
  Country: US (occurrence: US)
  Receive Date: 20150810
  Receipt Date: 20150810
  Transmission Date: 20151125
  Serious: No
  Sender: FDA-Public Use
  Company Number: US-TAKEDA-2015TUS010420

PATIENT
  Age: 58 Year
  Sex: Female

DRUGS (6)
  1. CONTRAVE [Suspect]
     Active Substance: BUPROPION HYDROCHLORIDE\NALTREXONE HYDROCHLORIDE
     Indication: OVERWEIGHT
     Dosage: 8MG/ 90MG, QD
     Route: 048
     Dates: start: 20150706, end: 20150712
  2. CONTRAVE [Suspect]
     Active Substance: BUPROPION HYDROCHLORIDE\NALTREXONE HYDROCHLORIDE
     Dosage: 8MG/ 90MG, QID
     Route: 048
     Dates: start: 20150727
  3. MUCINEX [Concomitant]
     Active Substance: GUAIFENESIN
     Indication: SINUS OPERATION
     Dosage: UNK
     Route: 048
     Dates: start: 20150628, end: 20150705
  4. FLONASE                            /00908302/ [Concomitant]
     Indication: SINUS OPERATION
     Dosage: UNK
     Dates: start: 20150628, end: 20150705
  5. CONTRAVE [Suspect]
     Active Substance: BUPROPION HYDROCHLORIDE\NALTREXONE HYDROCHLORIDE
     Dosage: 8MG/ 90MG, BID
     Route: 048
     Dates: start: 20150713, end: 20150719
  6. CONTRAVE [Suspect]
     Active Substance: BUPROPION HYDROCHLORIDE\NALTREXONE HYDROCHLORIDE
     Dosage: 8MG/ 90MG, TID
     Route: 048
     Dates: start: 20150720, end: 20150726

REACTIONS (1)
  - Headache [Not Recovered/Not Resolved]

NARRATIVE: CASE EVENT DATE: 20150721
